FAERS Safety Report 20733797 (Version 2)
Quarter: 2022Q4

REPORT INFORMATION
  Report Type: Spontaneous
  Country: US (occurrence: US)
  Receive Date: 20220421
  Receipt Date: 20221028
  Transmission Date: 20230113
  Serious: No
  Sender: FDA-Public Use
  Company Number: US-BRISTOL-MYERS SQUIBB COMPANY-2022-024757

PATIENT
  Age: 71 Year
  Sex: Female

DRUGS (3)
  1. ORENCIA [Suspect]
     Active Substance: ABATACEPT
     Indication: Rheumatoid arthritis
     Route: 058
     Dates: start: 20220401
  2. ORENCIA [Suspect]
     Active Substance: ABATACEPT
     Dosage: ONGOING
     Route: 058
     Dates: start: 201605
  3. METHOTREXATE [Concomitant]
     Active Substance: METHOTREXATE
     Indication: Product used for unknown indication
     Route: 065

REACTIONS (7)
  - Joint swelling [Unknown]
  - Pain [Unknown]
  - Gait disturbance [Unknown]
  - Malaise [Unknown]
  - Arthralgia [Unknown]
  - Drug ineffective [Unknown]
  - Rheumatoid arthritis [Recovering/Resolving]
